FAERS Safety Report 4497860-5 (Version None)
Quarter: 2004Q4

REPORT INFORMATION
  Report Type: 
  Country: None (occurrence: None)
  Receive Date: 20041110
  Receipt Date: 20040405
  Transmission Date: 20050328
  Serious: Yes (Hospitalization)
  Sender: FDA-Public Use
  Company Number: DE-GLAXOSMITHKLINE-D0043533A

PATIENT
  Age: 41 Year
  Sex: Female
  Weight: 59 kg

DRUGS (4)
  1. ELMENDOS [Suspect]
     Dosage: 200MG PER DAY
     Route: 048
     Dates: start: 20040317, end: 20040405
  2. LAMICTAL [Suspect]
     Dosage: 25MG PER DAY
     Route: 048
     Dates: start: 20040317, end: 20040404
  3. EDRONAX [Concomitant]
     Indication: ANTIDEPRESSANT THERAPY
     Dosage: 4MG PER DAY
     Route: 048
     Dates: start: 20040212
  4. OLANZAPINE [Concomitant]
     Indication: ELEVATED MOOD
     Dosage: 2.5MG PER DAY
     Route: 065
     Dates: start: 20040310, end: 20040329

REACTIONS (5)
  - ERYTHEMA [None]
  - EXANTHEM [None]
  - LYMPHADENOPATHY [None]
  - MUCOUS MEMBRANE DISORDER [None]
  - SWELLING FACE [None]
